FAERS Safety Report 10564254 (Version 2)
Quarter: 2014Q4

REPORT INFORMATION
  Report Type: Report from Study
  Country: US (occurrence: US)
  Receive Date: 20141104
  Receipt Date: 20141104
  Transmission Date: 20150529
  Serious: Yes (Death, Hospitalization)
  Sender: FDA-Public Use
  Company Number: US-ROCHE-GNE086002

PATIENT
  Age: 7 Year
  Sex: Male

DRUGS (5)
  1. SOMATREM [Suspect]
     Active Substance: SOMATREM
     Indication: GROWTH HORMONE DEFICIENCY
  2. PHENOBARBITAL. [Concomitant]
     Active Substance: PHENOBARBITAL
  3. SYNTHROID [Concomitant]
     Active Substance: LEVOTHYROXINE SODIUM
     Route: 065
     Dates: start: 19790403, end: 19860131
  4. HYDROCORTISONE. [Concomitant]
     Active Substance: HYDROCORTISONE
     Route: 065
     Dates: start: 19790223, end: 19860131
  5. SOMATREM [Suspect]
     Active Substance: SOMATREM
     Indication: HYPOGLYCAEMIA
     Route: 030
     Dates: start: 198512, end: 19860131

REACTIONS (2)
  - Seizure [Fatal]
  - Influenza like illness [Unknown]

NARRATIVE: CASE EVENT DATE: 19860131
